FAERS Safety Report 7975856-6 (Version None)
Quarter: 2011Q4

REPORT INFORMATION
  Report Type: 
  Country: None (occurrence: None)
  Receive Date: 20111213
  Receipt Date: 20110930
  Transmission Date: 20120403
  Serious: No
  Sender: FDA-Public Use
  Company Number: US-AMGEN-USASP2011050615

PATIENT
  Age: 21 Year
  Sex: Male

DRUGS (1)
  1. ENBREL [Suspect]
     Indication: PSORIATIC ARTHROPATHY
     Dosage: 50 MG, QWK
     Dates: start: 20110721, end: 20110915

REACTIONS (7)
  - OROPHARYNGEAL PAIN [None]
  - INSOMNIA [None]
  - COUGH [None]
  - RHINORRHOEA [None]
  - FATIGUE [None]
  - PSORIATIC ARTHROPATHY [None]
  - SNEEZING [None]
